FAERS Safety Report 9847516 (Version 1)
Quarter: 2014Q1

REPORT INFORMATION
  Report Type: Report from Study
  Country: US (occurrence: US)
  Receive Date: 20140128
  Receipt Date: 20140128
  Transmission Date: 20141002
  Serious: Yes (Other)
  Sender: FDA-Public Use
  Company Number: US-ROCHE-1337097

PATIENT
  Age: 7 Year
  Sex: Male
  Weight: 84.8 kg

DRUGS (3)
  1. NUTROPIN [Suspect]
     Indication: HYPOPITUITARISM
     Route: 058
     Dates: start: 20040921
  2. SYNTHROID [Concomitant]
     Indication: HYPOTHYROIDISM
     Route: 048
     Dates: start: 20001226
  3. VITAMIN D3 [Concomitant]
     Dosage: IN THE AM
     Route: 048
     Dates: start: 200908

REACTIONS (10)
  - Bone disorder [Unknown]
  - Upper respiratory tract infection [Recovered/Resolved]
  - Vitamin D deficiency [Unknown]
  - Bronchiolitis [Recovered/Resolved]
  - Neutropenia [Unknown]
  - Learning disability [Unknown]
  - Ear infection [Recovered/Resolved]
  - Drug dose omission [Unknown]
  - Limb deformity [Unknown]
  - Eyelid ptosis [Unknown]
